FAERS Safety Report 8934059 (Version 2)
Quarter: 2012Q4

REPORT INFORMATION
  Report Type: 
  Country: FR (occurrence: FR)
  Receive Date: 20121129
  Receipt Date: 20121220
  Transmission Date: 20130627
  Serious: Yes (Hospitalization, Other)
  Sender: FDA-Public Use
  Company Number: FR-ELI_LILLY_AND_COMPANY-FR201211005231

PATIENT
  Age: 78 Year
  Sex: Female

DRUGS (4)
  1. FORSTEO [Suspect]
     Indication: OSTEOPOROSIS
     Dosage: 20 ug, qd
     Route: 058
     Dates: start: 20111220, end: 20120928
  2. MONOTILDIEM [Concomitant]
     Dosage: UNK, unknown
     Route: 065
  3. VASTAREL [Concomitant]
     Dosage: UNK, unknown
     Route: 065
  4. ACTISKENAN [Concomitant]
     Dosage: 5 mg, qd

REACTIONS (1)
  - Cerebrovascular accident [Not Recovered/Not Resolved]
